FAERS Safety Report 24709952 (Version 1)
Quarter: 2024Q4

REPORT INFORMATION
  Report Type: Report from Study
  Country: US (occurrence: US)
  Receive Date: 20241209
  Receipt Date: 20241209
  Transmission Date: 20250114
  Serious: Yes (Death)
  Sender: JOHNSON AND JOHNSON
  Company Number: US-JNJFOC-20241207239

PATIENT
  Sex: Female

DRUGS (2)
  1. SPRAVATO [Suspect]
     Active Substance: ESKETAMINE
     Indication: Depression
     Dosage: ^^84 MG, 68 TOTAL DOSES^^
     Route: 045
     Dates: start: 20220504, end: 20240227
  2. SPRAVATO [Suspect]
     Active Substance: ESKETAMINE
     Dosage: ^^56 MG, 8 TOTAL DOSES^^
     Route: 045
     Dates: start: 20220330, end: 20220425

REACTIONS (1)
  - Death [Fatal]
